FAERS Safety Report 16151742 (Version 2)
Quarter: 2019Q2

REPORT INFORMATION
  Report Type: Spontaneous
  Country: US (occurrence: US)
  Receive Date: 20190403
  Receipt Date: 20190524
  Transmission Date: 20190711
  Serious: No
  Sender: FDA-Public Use
  Company Number: US-BIOGEN-2018BI00618568

PATIENT
  Sex: Female

DRUGS (6)
  1. VITAMIN D [Concomitant]
     Active Substance: VITAMIN D NOS
     Indication: PRODUCT USED FOR UNKNOWN INDICATION
     Route: 050
  2. XANAX [Concomitant]
     Active Substance: ALPRAZOLAM
     Indication: PRODUCT USED FOR UNKNOWN INDICATION
     Route: 050
  3. VITAMIN B12 [Concomitant]
     Active Substance: CYANOCOBALAMIN
     Indication: PRODUCT USED FOR UNKNOWN INDICATION
     Route: 050
  4. MIDODRINE HCL [Concomitant]
     Active Substance: MIDODRINE HYDROCHLORIDE
     Indication: PRODUCT USED FOR UNKNOWN INDICATION
     Route: 050
  5. TECFIDERA [Suspect]
     Active Substance: DIMETHYL FUMARATE
     Indication: MULTIPLE SCLEROSIS
     Dosage: TAKE 1 CAPSULE BY MOUTH TWICE A DAY
     Route: 050
     Dates: start: 20171016
  6. GABAPENTIN. [Concomitant]
     Active Substance: GABAPENTIN
     Indication: PRODUCT USED FOR UNKNOWN INDICATION
     Route: 050

REACTIONS (8)
  - Feeling abnormal [Not Recovered/Not Resolved]
  - Nasopharyngitis [Recovered/Resolved]
  - Product dose omission [Not Recovered/Not Resolved]
  - Sinusitis [Recovered/Resolved]
  - Malaise [Not Recovered/Not Resolved]
  - Fatigue [Not Recovered/Not Resolved]
  - Flushing [Not Recovered/Not Resolved]
  - Nausea [Not Recovered/Not Resolved]
